FAERS Safety Report 11403053 (Version 1)
Quarter: 2015Q3

REPORT INFORMATION
  Report Type: Spontaneous
  Country: US (occurrence: US)
  Receive Date: 20150821
  Receipt Date: 20150821
  Transmission Date: 20151125
  Serious: No
  Sender: FDA-Public Use
  Company Number: US-ROCHE-1366243

PATIENT
  Sex: Female

DRUGS (5)
  1. RIBAVIRIN. [Suspect]
     Active Substance: RIBAVIRIN
     Indication: CHRONIC HEPATITIS C
     Route: 065
     Dates: start: 20140214
  2. PROZAC [Concomitant]
     Active Substance: FLUOXETINE HYDROCHLORIDE
  3. PEGASYS [Suspect]
     Active Substance: PEGINTERFERON ALFA-2A
     Indication: CHRONIC HEPATITIS C
     Route: 065
     Dates: start: 20140214
  4. SOVALDI [Concomitant]
     Active Substance: SOFOSBUVIR
     Indication: CHRONIC HEPATITIS C
     Route: 065
     Dates: start: 20140214
  5. TYLENOL [Concomitant]
     Active Substance: ACETAMINOPHEN

REACTIONS (5)
  - Crying [Unknown]
  - Weight increased [Unknown]
  - Lethargy [Unknown]
  - Influenza like illness [Unknown]
  - Arthralgia [Unknown]
